FAERS Safety Report 9564141 (Version 1)
Quarter: 2013Q3

REPORT INFORMATION
  Report Type: Spontaneous
  Country: US (occurrence: US)
  Receive Date: 20130929
  Receipt Date: 20130929
  Transmission Date: 20140515
  Serious: Yes (Other)
  Sender: FDA-Public Use
  Company Number: US-AMGEN-USASP2013067549

PATIENT
  Age: 62 Year
  Sex: Male

DRUGS (1)
  1. ENBREL [Suspect]
     Indication: RHEUMATOID ARTHRITIS
     Dosage: UNK UNK, QWK
     Route: 065
     Dates: start: 20070306

REACTIONS (5)
  - Blindness transient [Recovered/Resolved]
  - Eye ulcer [Recovered/Resolved]
  - Pain in extremity [Recovered/Resolved]
  - Hand deformity [Recovered/Resolved]
  - Finger deformity [Not Recovered/Not Resolved]
